FAERS Safety Report 25978887 (Version 1)
Quarter: 2025Q4

REPORT INFORMATION
  Report Type: Spontaneous
  Country: EU (occurrence: EU)
  Receive Date: 20251030
  Receipt Date: 20251030
  Transmission Date: 20260117
  Serious: Yes (Hospitalization)
  Sender: ROCHE
  Company Number: None

PATIENT
  Age: 50 Year
  Sex: Female
  Weight: 51 kg

DRUGS (6)
  1. PERJETA [Suspect]
     Active Substance: PERTUZUMAB
     Indication: Breast cancer metastatic
     Route: 042
     Dates: start: 20250826, end: 20250826
  2. PERJETA [Suspect]
     Active Substance: PERTUZUMAB
     Route: 042
     Dates: start: 20250805, end: 20250805
  3. PACLITAXEL [Suspect]
     Active Substance: PACLITAXEL
     Indication: Breast cancer metastatic
     Route: 042
     Dates: start: 20250805, end: 20250805
  4. PACLITAXEL [Suspect]
     Active Substance: PACLITAXEL
     Route: 042
     Dates: start: 20250826, end: 20250826
  5. OGIVRI [Suspect]
     Active Substance: TRASTUZUMAB-DKST
     Indication: Breast cancer metastatic
     Route: 042
     Dates: start: 20250826, end: 20250826
  6. OGIVRI [Suspect]
     Active Substance: TRASTUZUMAB-DKST
     Route: 042
     Dates: start: 20250805, end: 20250805

REACTIONS (3)
  - Pulmonary oedema [Recovering/Resolving]
  - Cardiac failure acute [Recovering/Resolving]
  - Body temperature increased [Recovered/Resolved]

NARRATIVE: CASE EVENT DATE: 20250904
